FAERS Safety Report 7653574-1 (Version None)
Quarter: 2011Q3

REPORT INFORMATION
  Report Type: 
  Country: None (occurrence: None)
  Receive Date: 20110803
  Receipt Date: 20110729
  Transmission Date: 20111222
  Serious: Yes (Other)
  Sender: FDA-Public Use
  Company Number: PHHY2011GB68165

PATIENT
  Age: 61 Year
  Sex: Female

DRUGS (5)
  1. MIRTAZAPINE [Suspect]
     Dosage: 45 MG, QD
  2. ZOPICLONE [Concomitant]
     Dosage: 3.75 MG, UNK
  3. LYRICA [Suspect]
     Dosage: 50 MG, TID
  4. LORAZEPAM [Concomitant]
     Dosage: 0.5 MG AS REQUIRED
  5. QUETIAPINE [Concomitant]
     Dosage: 25 MG, UNK

REACTIONS (2)
  - HEPATIC STEATOSIS [None]
  - OEDEMA PERIPHERAL [None]
